FAERS Safety Report 13913907 (Version 1)
Quarter: 2017Q3

REPORT INFORMATION
  Report Type: Spontaneous
  Country: US (occurrence: US)
  Receive Date: 20170828
  Receipt Date: 20170828
  Transmission Date: 20171127
  Serious: No
  Sender: FDA-Public Use
  Company Number: US-ROCHE-1140805

PATIENT
  Age: 5 Year
  Sex: Male
  Weight: 16.7 kg

DRUGS (4)
  1. NUTROPIN AQ [Suspect]
     Active Substance: SOMATROPIN
     Indication: CHRONIC KIDNEY DISEASE
     Route: 058
     Dates: start: 19960807
  2. JOULIE^S SOLUTION [Concomitant]
     Dosage: 2.5 CC
     Route: 065
  3. NUTROPIN AQ [Suspect]
     Active Substance: SOMATROPIN
     Indication: GROWTH HORMONE DEFICIENCY
  4. POLYCITRA [Concomitant]
     Dosage: 10 CC
     Route: 065

REACTIONS (1)
  - Scarlet fever [Unknown]

NARRATIVE: CASE EVENT DATE: 199903
